FAERS Safety Report 5542046-6 (Version None)
Quarter: 2007Q4

REPORT INFORMATION
  Report Type: 
  Country: None (occurrence: None)
  Receive Date: 20071210
  Receipt Date: 20071204
  Transmission Date: 20080405
  Serious: Yes (Other)
  Sender: FDA-Public Use
  Company Number: PHBS2007TR20536

PATIENT
  Age: 45 Year
  Sex: Female
  Weight: 81 kg

DRUGS (2)
  1. BORTEZOMIB [Concomitant]
  2. ZOMETA [Suspect]
     Dosage: 4 MG, UNK

REACTIONS (3)
  - EXCESSIVE GRANULATION TISSUE [None]
  - OSTEONECROSIS [None]
  - TOOTH EXTRACTION [None]
